FAERS Safety Report 4662050-X (Version None)
Quarter: 2005Q2

REPORT INFORMATION
  Report Type: 
  Country: None (occurrence: None)
  Receive Date: 20050512
  Receipt Date: 20050429
  Transmission Date: 20051028
  Serious: Yes (Other)
  Sender: FDA-Public Use
  Company Number: 2005036818

PATIENT
  Age: 83 Year
  Sex: Male
  Weight: 83.9154 kg

DRUGS (11)
  1. DETROL LA [Suspect]
     Indication: POLLAKIURIA
     Dosage: 4 MG (4 MG, 1 IN 1 D), ORAL
     Route: 048
  2. DETROL [Suspect]
     Indication: POLLAKIURIA
     Dosage: 2 MG (2 MG, 1 IN 1 D), ORAL
     Route: 048
     Dates: start: 20050101
  3. OTHER RESPIRATORY SYSTEM PRODUCTS (OTHER RESPIRATORY SYSTEM PRODUCTS) [Suspect]
     Indication: PNEUMONIA
     Dosage: INHALATION
     Route: 055
     Dates: start: 20050101
  4. NICOTINIC ACID (NICOTNIC ACID) [Concomitant]
  5. GARLIC (GARLIC) [Concomitant]
  6. ASPIRIN [Concomitant]
  7. CILOSTAZOL [Concomitant]
  8. TAMSULOSIN HYDROCHLORIDE (TAMSULOSIN HYDROCHLORIDE) [Concomitant]
  9. SERENOA REPENS (SERENOA REPENS) [Concomitant]
  10. VITAMINS (VITAMINS) [Concomitant]
  11. SIMVASTATIN [Concomitant]

REACTIONS (10)
  - ABDOMINAL DISTENSION [None]
  - DRUG INEFFECTIVE [None]
  - HEART RATE INCREASED [None]
  - INFLUENZA [None]
  - PNEUMONIA [None]
  - POLLAKIURIA [None]
  - RETINOPATHY [None]
  - TREATMENT NONCOMPLIANCE [None]
  - URINARY INCONTINENCE [None]
  - WEIGHT DECREASED [None]
